FAERS Safety Report 16976022 (Version 1)
Quarter: 2019Q4

REPORT INFORMATION
  Report Type: Spontaneous
  Country: CN (occurrence: CN)
  Receive Date: 20191030
  Receipt Date: 20191030
  Transmission Date: 20200122
  Serious: Yes (Other)
  Sender: FDA-Public Use
  Company Number: CN-ASTRAZENECA-2019SF41941

PATIENT
  Age: 919 Month
  Sex: Female
  Weight: 52 kg

DRUGS (3)
  1. LIPITOR [Concomitant]
     Active Substance: ATORVASTATIN CALCIUM
     Indication: VASODILATATION
     Dosage: 1 TABLET IN THE MORNING AND 1 TABLET IN THE EVENING
  2. IRESSA [Suspect]
     Active Substance: GEFITINIB
     Indication: NON-SMALL CELL LUNG CANCER
     Route: 048
     Dates: start: 201807, end: 201906
  3. CALCIUM [Concomitant]
     Active Substance: CALCIUM

REACTIONS (3)
  - Drug resistance [Unknown]
  - Malignant neoplasm progression [Unknown]
  - Discomfort [Unknown]

NARRATIVE: CASE EVENT DATE: 201906
